FAERS Safety Report 20459644 (Version 2)
Quarter: 2024Q2

REPORT INFORMATION
  Report Type: Spontaneous
  Country: US (occurrence: US)
  Receive Date: 20220211
  Receipt Date: 20240516
  Transmission Date: 20240716
  Serious: No
  Sender: FDA-Public Use
  Company Number: US-NOVITIUMPHARMA-2022USNVP00004

PATIENT
  Age: 79 Year
  Sex: Female
  Weight: 200 kg

DRUGS (1)
  1. PREDNISONE [Suspect]
     Active Substance: PREDNISONE
     Indication: Musculoskeletal pain
     Route: 048
     Dates: start: 20210410, end: 202105

REACTIONS (3)
  - Pain in extremity [Not Recovered/Not Resolved]
  - Peripheral swelling [Not Recovered/Not Resolved]
  - Drug ineffective [Unknown]
